FAERS Safety Report 19866116 (Version 2)
Quarter: 2021Q4

REPORT INFORMATION
  Report Type: Report from Study
  Country: None (occurrence: US)
  Receive Date: 20210922
  Receipt Date: 20211021
  Transmission Date: 20220303
  Serious: Yes (Other)
  Sender: FDA-Public Use
  Company Number: US-ABBVIE-21K-163-4085807-00

PATIENT
  Age: 67 Year
  Sex: Male
  Weight: 128.94 kg

DRUGS (19)
  1. HUMIRA [Suspect]
     Active Substance: ADALIMUMAB
     Indication: Rheumatoid arthritis
     Dosage: CITRATE FREE
     Route: 058
     Dates: end: 202108
  2. MODERNA COVID-19 VACCINE [Suspect]
     Active Substance: CX-024414
     Indication: COVID-19 immunisation
     Route: 030
     Dates: start: 20210315, end: 20210315
  3. MODERNA COVID-19 VACCINE [Suspect]
     Active Substance: CX-024414
     Route: 030
     Dates: start: 20210410, end: 20210410
  4. METHOTREXATE [Concomitant]
     Active Substance: METHOTREXATE
     Indication: Rheumatoid arthritis
  5. PREDNISONE [Concomitant]
     Active Substance: PREDNISONE
     Indication: Rheumatoid arthritis
  6. PRIMIDONE [Concomitant]
     Active Substance: PRIMIDONE
     Indication: Nervous system disorder
  7. PLAVIX [Concomitant]
     Active Substance: CLOPIDOGREL BISULFATE
     Indication: Blood disorder
  8. METFORMIN [Concomitant]
     Active Substance: METFORMIN HYDROCHLORIDE
     Indication: Diabetes mellitus
  9. CELEXA [Concomitant]
     Active Substance: CITALOPRAM HYDROBROMIDE
     Indication: Cardiac disorder
  10. IMDUR [Concomitant]
     Active Substance: ISOSORBIDE MONONITRATE
     Indication: Cardiac disorder
  11. CRESTOR [Concomitant]
     Active Substance: ROSUVASTATIN CALCIUM
     Indication: Product used for unknown indication
  12. OMEPRAZOLE [Concomitant]
     Active Substance: OMEPRAZOLE
     Indication: Gastrooesophageal reflux disease
  13. TRAMADOL [Concomitant]
     Active Substance: TRAMADOL
     Indication: Pain
  14. FOLIC ACID [Concomitant]
     Active Substance: FOLIC ACID
     Indication: Arthritis
  15. VITAMIN C [Concomitant]
     Active Substance: ASCORBIC ACID
     Indication: Supplementation therapy
  16. FIBER [Concomitant]
     Active Substance: PSYLLIUM HUSK
     Indication: Supplementation therapy
  17. FISH OIL [Concomitant]
     Active Substance: FISH OIL
     Indication: Supplementation therapy
  18. VITAMIN D NOS [Concomitant]
     Active Substance: VITAMIN D NOS
     Indication: Supplementation therapy
  19. VITAMIN B12 [Concomitant]
     Active Substance: CYANOCOBALAMIN
     Indication: Supplementation therapy

REACTIONS (8)
  - Haemorrhoids [Recovered/Resolved]
  - Large intestine polyp [Recovered/Resolved]
  - Asthenia [Unknown]
  - Blood pressure abnormal [Unknown]
  - Fall [Unknown]
  - Osteoporosis [Unknown]
  - Haemoglobin decreased [Recovering/Resolving]
  - Feeling abnormal [Unknown]

NARRATIVE: CASE EVENT DATE: 20210101
